FAERS Safety Report 23508720 (Version 1)
Quarter: 2024Q1

REPORT INFORMATION
  Report Type: Spontaneous
  Country: BE (occurrence: BE)
  Receive Date: 20240209
  Receipt Date: 20240209
  Transmission Date: 20240409
  Serious: Yes (Other)
  Sender: FDA-Public Use
  Company Number: BE-002147023-NVSC2021BE318066

PATIENT
  Age: 57 Year
  Sex: Male

DRUGS (7)
  1. GLIVEC [Suspect]
     Active Substance: IMATINIB MESYLATE
     Indication: Desmoid tumour
     Route: 065
  2. GLIVEC [Suspect]
     Active Substance: IMATINIB MESYLATE
     Indication: Gastrointestinal stromal tumour
  3. VOTRIENT [Suspect]
     Active Substance: PAZOPANIB HYDROCHLORIDE
     Indication: Desmoid tumour
     Dosage: 800 MG, QD
     Route: 065
  4. SUNITINIB [Suspect]
     Active Substance: SUNITINIB
     Indication: Desmoid tumour
     Dosage: UNK
     Route: 065
  5. SUNITINIB [Suspect]
     Active Substance: SUNITINIB
     Indication: Gastrointestinal stromal tumour
  6. REGORAFENIB [Suspect]
     Active Substance: REGORAFENIB
     Indication: Desmoid tumour
     Dosage: UNK
     Route: 065
  7. REGORAFENIB [Suspect]
     Active Substance: REGORAFENIB
     Indication: Gastrointestinal stromal tumour

REACTIONS (3)
  - Disease progression [Not Recovered/Not Resolved]
  - Metastases to liver [Unknown]
  - Abdominal mass [Unknown]

NARRATIVE: CASE EVENT DATE: 20110801
